FAERS Safety Report 25102653 (Version 1)
Quarter: 2025Q1

REPORT INFORMATION
  Report Type: Spontaneous
  Country: GB (occurrence: GB)
  Receive Date: 20250321
  Receipt Date: 20250321
  Transmission Date: 20250408
  Serious: Yes (Hospitalization, Other)
  Sender: RANBAXY
  Company Number: GB-SUN PHARMACEUTICAL INDUSTRIES LTD-2025R1-499514

PATIENT
  Age: 37 Year
  Sex: Male

DRUGS (2)
  1. ALLOPURINOL [Suspect]
     Active Substance: ALLOPURINOL
     Indication: Polyarthritis
     Route: 065
  2. PREDNISOLONE [Suspect]
     Active Substance: PREDNISOLONE
     Indication: Polyarthritis
     Route: 048

REACTIONS (1)
  - Treatment failure [Unknown]
